FAERS Safety Report 6780943-4 (Version None)
Quarter: 2010Q2

REPORT INFORMATION
  Report Type: 
  Country: None (occurrence: None)
  Receive Date: 20100615
  Receipt Date: 20100602
  Transmission Date: 20101027
  Serious: Yes (Death)
  Sender: FDA-Public Use
  Company Number: 430001L08ESP

PATIENT
  Age: 52 Year
  Sex: Female

DRUGS (3)
  1. MITOXANTRONE [Suspect]
     Indication: MULTIPLE SCLEROSIS
     Dosage: 10 MG/M2, 1 IN 1 M
     Dates: start: 20041201, end: 20050301
  2. AZATHIOPRINE [Concomitant]
  3. INTERFERON BETA 1B (INTERFERON BETA-1B) [Concomitant]

REACTIONS (6)
  - ACUTE PROMYELOCYTIC LEUKAEMIA [None]
  - CEREBRAL HAEMORRHAGE [None]
  - CYTOGENETIC ANALYSIS ABNORMAL [None]
  - FATIGUE [None]
  - PANCYTOPENIA [None]
  - PYREXIA [None]
